FAERS Safety Report 5057114-5 (Version None)
Quarter: 2006Q2

REPORT INFORMATION
  Report Type: 
  Country: None (occurrence: None)
  Receive Date: 20060622
  Receipt Date: 20050603
  Transmission Date: 20061013
  Serious: Yes (Hospitalization)
  Sender: FDA-Public Use
  Company Number: US-JNJFOC-20050500590

PATIENT
  Age: 74 Year
  Sex: Female
  Weight: 52.1637 kg

DRUGS (6)
  1. DURAGESIC-100 [Suspect]
     Indication: PAIN
     Dosage: 100 UG/HR, TRANSDERMAL
     Route: 062
     Dates: end: 20050428
  2. ZETIA [Concomitant]
  3. PLAVIX [Concomitant]
  4. ATENOLOL [Concomitant]
  5. ANALAPRIL (ENALAPRIL) [Concomitant]
  6. SYNTHROID [Concomitant]

REACTIONS (2)
  - ANXIETY [None]
  - DYSPNOEA [None]
